FAERS Safety Report 23958733 (Version 1)
Quarter: 2024Q2

REPORT INFORMATION
  Report Type: Spontaneous
  Country: MA (occurrence: None)
  Receive Date: 20240610
  Receipt Date: 20240610
  Transmission Date: 20240716
  Serious: Yes (Death, Other)
  Sender: FDA-Public Use
  Company Number: MA-Unichem Pharmaceuticals (USA) Inc-UCM202406-000685

PATIENT
  Age: 26 Year
  Sex: Female

DRUGS (1)
  1. METRONIDAZOLE [Suspect]
     Active Substance: METRONIDAZOLE
     Indication: Product used for unknown indication
     Dosage: UNKNOWN

REACTIONS (3)
  - Toxic encephalopathy [Fatal]
  - Condition aggravated [Fatal]
  - Toxicity to various agents [Fatal]
